FAERS Safety Report 18085118 (Version 1)
Quarter: 2020Q3

REPORT INFORMATION
  Report Type: Report from Study
  Country: CL (occurrence: CL)
  Receive Date: 20200729
  Receipt Date: 20200729
  Transmission Date: 20201103
  Serious: Yes (Disabling)
  Sender: FDA-Public Use
  Company Number: NVSC2020CL150392

PATIENT
  Sex: Female

DRUGS (2)
  1. COSENTYX [Suspect]
     Active Substance: SECUKINUMAB
     Indication: PSORIATIC ARTHROPATHY
     Dosage: 150 MG, QMO
     Route: 048
     Dates: start: 20200512
  2. COSENTYX [Suspect]
     Active Substance: SECUKINUMAB
     Dosage: 150 MG
     Route: 048
     Dates: start: 20200609

REACTIONS (10)
  - Rash macular [Recovering/Resolving]
  - Swelling face [Recovering/Resolving]
  - Drug hypersensitivity [Unknown]
  - Incorrect route of product administration [Unknown]
  - Dyspepsia [Recovering/Resolving]
  - Musculoskeletal discomfort [Not Recovered/Not Resolved]
  - Drug ineffective [Unknown]
  - Pain [Recovering/Resolving]
  - Gait disturbance [Recovering/Resolving]
  - Anxiety [Not Recovered/Not Resolved]

NARRATIVE: CASE EVENT DATE: 2020
